FAERS Safety Report 20880428 (Version 2)
Quarter: 2022Q2

REPORT INFORMATION
  Report Type: Spontaneous
  Country: ES (occurrence: ES)
  Receive Date: 20220526
  Receipt Date: 20220620
  Transmission Date: 20220720
  Serious: Yes (Hospitalization, Other)
  Sender: FDA-Public Use
  Company Number: ES-FERRINGPH-2022FE02377

PATIENT
  Sex: Male

DRUGS (9)
  1. MESALAMINE [Suspect]
     Active Substance: MESALAMINE
     Indication: Proctitis ulcerative
     Dosage: 3 G, QD
     Dates: start: 202001
  2. MESALAMINE [Suspect]
     Active Substance: MESALAMINE
     Dosage: 1 G, QD
     Dates: start: 201905
  3. MESALAMINE [Suspect]
     Active Substance: MESALAMINE
     Dosage: 2 G, QD
     Dates: start: 201905
  4. MESALAMINE [Suspect]
     Active Substance: MESALAMINE
     Dosage: 1.5 G, QD
     Dates: start: 201907
  5. BUDESONIDE [Concomitant]
     Active Substance: BUDESONIDE
     Indication: Asthma
  6. BUDESONIDE [Concomitant]
     Active Substance: BUDESONIDE
     Indication: Rhinitis allergic
  7. BUDESONIDE [Concomitant]
     Active Substance: BUDESONIDE
     Indication: Urticaria
  8. CORTICOSTEROID NOS [Concomitant]
     Active Substance: CORTICOSTEROID NOS
     Indication: Pancreatitis acute
     Dosage: 25 MG, QD
     Dates: start: 201907
  9. METHYLPREDNISOLONE [Concomitant]
     Active Substance: METHYLPREDNISOLONE
     Indication: Colitis
     Dosage: 1 MG/KG, QD
     Dates: start: 202001

REACTIONS (3)
  - Pancreatitis acute [Recovered/Resolved]
  - Pancreatitis acute [Recovered/Resolved]
  - Colitis ulcerative [Recovering/Resolving]

NARRATIVE: CASE EVENT DATE: 20190601
